FAERS Safety Report 17860315 (Version 4)
Quarter: 2021Q3

REPORT INFORMATION
  Report Type: Spontaneous
  Country: US (occurrence: US)
  Receive Date: 20200604
  Receipt Date: 20210805
  Transmission Date: 20211014
  Serious: Yes (Other)
  Sender: FDA-Public Use
  Company Number: US-GLOBAL BLOOD THERAPEUTICS INC-US-GBT-20-01316

PATIENT
  Age: 26 Year
  Sex: Female

DRUGS (5)
  1. OXBRYTA [Suspect]
     Active Substance: VOXELOTOR
     Route: 048
  2. OXBRYTA [Suspect]
     Active Substance: VOXELOTOR
     Route: 048
  3. OXBRYTA [Suspect]
     Active Substance: VOXELOTOR
     Route: 048
  4. OXBRYTA [Suspect]
     Active Substance: VOXELOTOR
     Indication: SICKLE CELL DISEASE
     Route: 048
     Dates: start: 20200218
  5. OXBRYTA [Suspect]
     Active Substance: VOXELOTOR
     Route: 048
     Dates: end: 202102

REACTIONS (5)
  - Therapy cessation [Unknown]
  - Sickle cell anaemia with crisis [Recovering/Resolving]
  - Therapy non-responder [Unknown]
  - Diarrhoea [Recovered/Resolved]
  - Intentional product misuse [Unknown]

NARRATIVE: CASE EVENT DATE: 20200428
